FAERS Safety Report 6815168-7 (Version None)
Quarter: 2010Q2

REPORT INFORMATION
  Report Type: 
  Country: None (occurrence: None)
  Receive Date: 20100630
  Receipt Date: 20100630
  Transmission Date: 20101027
  Serious: No
  Sender: FDA-Public Use
  Company Number: None

PATIENT
  Age: 53 Year
  Sex: Male
  Weight: 64.4108 kg

DRUGS (1)
  1. ZICAM COLD REMEDY GEL SWABS ZINCUM GLUCONICUM 2X ZICAM LLC [Suspect]
     Indication: NASOPHARYNGITIS
     Dates: start: 20100505, end: 20100506

REACTIONS (4)
  - AGEUSIA [None]
  - ANOSMIA [None]
  - EMOTIONAL DISTRESS [None]
  - NASAL DISCOMFORT [None]
